FAERS Safety Report 23816494 (Version 1)
Quarter: 2024Q2

REPORT INFORMATION
  Report Type: Spontaneous
  Country: GR (occurrence: GR)
  Receive Date: 20240503
  Receipt Date: 20240503
  Transmission Date: 20240715
  Serious: Yes (Hospitalization, Other)
  Sender: FDA-Public Use
  Company Number: GR-SANDOZ-SDZ2024GR044914

PATIENT
  Age: 76 Year
  Sex: Female

DRUGS (1)
  1. HYRIMOZ [Suspect]
     Active Substance: ADALIMUMAB-ADAZ
     Indication: Rheumatoid arthritis
     Dosage: 1 INJECTION EVERY 2 WEEKS
     Route: 065
     Dates: end: 202308

REACTIONS (5)
  - Central nervous system lymphoma [Unknown]
  - Encephalitis [Unknown]
  - Encephalopathy [Unknown]
  - Bedridden [Unknown]
  - Drug ineffective [Unknown]

NARRATIVE: CASE EVENT DATE: 20230601
